FAERS Safety Report 17324899 (Version 10)
Quarter: 2021Q4

REPORT INFORMATION
  Report Type: Report from Study
  Country: US (occurrence: US)
  Receive Date: 20200127
  Receipt Date: 20211102
  Transmission Date: 20220303
  Serious: Yes (Hospitalization, Other)
  Sender: FDA-Public Use
  Company Number: US-JAZZ-2019-US-017967

PATIENT
  Age: 38 Year
  Sex: Female

DRUGS (18)
  1. XYREM [Suspect]
     Active Substance: SODIUM OXYBATE
     Indication: Narcolepsy
     Dosage: 2.25 GRAM, BID
     Route: 048
     Dates: start: 201912, end: 201912
  2. XYREM [Suspect]
     Active Substance: SODIUM OXYBATE
     Indication: Cataplexy
     Dosage: UNKOWN DOSE
     Route: 048
     Dates: start: 201912, end: 201912
  3. XYREM [Suspect]
     Active Substance: SODIUM OXYBATE
     Dosage: 1 GRAM, BID
     Route: 048
     Dates: start: 201912, end: 201912
  4. XYREM [Suspect]
     Active Substance: SODIUM OXYBATE
     Dosage: 2.25 GRAM, BID
     Route: 048
     Dates: start: 20191217
  5. XYREM [Suspect]
     Active Substance: SODIUM OXYBATE
     Dosage: 3 GRAM, BID
     Route: 048
  6. XYREM [Suspect]
     Active Substance: SODIUM OXYBATE
     Dosage: 3.75 GRAM, BID
     Route: 048
  7. XYREM [Suspect]
     Active Substance: SODIUM OXYBATE
     Dosage: 4.5 GRAM, BID
     Route: 048
     Dates: start: 202001, end: 2020
  8. XYREM [Suspect]
     Active Substance: SODIUM OXYBATE
     Dosage: 3.5 GRAM, BID
     Route: 048
     Dates: start: 2020, end: 2020
  9. XYREM [Suspect]
     Active Substance: SODIUM OXYBATE
     Dosage: UNKNOWN LOWERED DOSE
     Route: 048
     Dates: start: 2020
  10. XYREM [Suspect]
     Active Substance: SODIUM OXYBATE
     Dosage: 3.75 GRAM, QD
     Route: 048
  11. LYRICA [Suspect]
     Active Substance: PREGABALIN
     Indication: Back pain
  12. LAMICTAL [Suspect]
     Active Substance: LAMOTRIGINE
     Indication: Product used for unknown indication
     Dosage: 150 MILLIGRAM, BID
     Route: 048
  13. LAMOTRIGINE [Concomitant]
     Active Substance: LAMOTRIGINE
     Indication: Product used for unknown indication
  14. LORAZEPAM [Concomitant]
     Active Substance: LORAZEPAM
     Indication: Product used for unknown indication
  15. MELOXICAM [Concomitant]
     Active Substance: MELOXICAM
     Indication: Product used for unknown indication
  16. PREMARIN [Concomitant]
     Active Substance: ESTROGENS, CONJUGATED
     Indication: Product used for unknown indication
  17. TRAZODONE [Concomitant]
     Active Substance: TRAZODONE HYDROCHLORIDE
     Indication: Product used for unknown indication
  18. VIIBRYD [Concomitant]
     Active Substance: VILAZODONE HYDROCHLORIDE
     Indication: Product used for unknown indication

REACTIONS (14)
  - Psychogenic seizure [Recovering/Resolving]
  - Back pain [Unknown]
  - Cataplexy [Unknown]
  - Peroneal nerve palsy [Not Recovered/Not Resolved]
  - Muscle rigidity [Recovered/Resolved]
  - Drug interaction [Unknown]
  - Muscle twitching [Not Recovered/Not Resolved]
  - Nerve compression [Not Recovered/Not Resolved]
  - Hyperhidrosis [Recovering/Resolving]
  - Abnormal dreams [Unknown]
  - Dizziness [Recovering/Resolving]
  - Poor quality sleep [Unknown]
  - Tremor [Not Recovered/Not Resolved]
  - Weight decreased [Not Recovered/Not Resolved]

NARRATIVE: CASE EVENT DATE: 20191201
